FAERS Safety Report 18089397 (Version 1)
Quarter: 2020Q3

REPORT INFORMATION
  Report Type: Report from Study
  Country: US (occurrence: US)
  Receive Date: 20200729
  Receipt Date: 20200729
  Transmission Date: 20201103
  Serious: Yes (Death, Hospitalization, Other)
  Sender: FDA-Public Use
  Company Number: US-BRISTOL-MYERS SQUIBB COMPANY-BMS-2020-021061

PATIENT
  Sex: Female
  Weight: 67 kg

DRUGS (2)
  1. NIVOLUMAB [Suspect]
     Active Substance: NIVOLUMAB
     Indication: COLORECTAL CANCER
     Dosage: 480 MILLIGRAM
     Route: 042
     Dates: start: 20200109, end: 20200206
  2. REGORAFENIB. [Suspect]
     Active Substance: REGORAFENIB
     Indication: COLORECTAL CANCER
     Dosage: 80 MILLIGRAM
     Route: 048
     Dates: start: 20200109, end: 20200226

REACTIONS (4)
  - Flank pain [Recovered/Resolved]
  - Septic shock [Not Recovered/Not Resolved]
  - Death [Fatal]
  - Asthenia [Recovered/Resolved]

NARRATIVE: CASE EVENT DATE: 20200109
